FAERS Safety Report 10090093 (Version 1)
Quarter: 2014Q2

REPORT INFORMATION
  Report Type: Spontaneous
  Country: US (occurrence: None)
  Receive Date: 20140417
  Receipt Date: 20140417
  Transmission Date: 20141212
  Serious: Yes (Death, Hospitalization)
  Sender: FDA-Public Use
  Company Number: UTC-046118

PATIENT
  Age: 69 Year
  Sex: Female
  Weight: 68.04 kg

DRUGS (3)
  1. REMODULIN (5 MILLIGRAM/ MILLILITERS, INJECTION FOR INFUSION) (TREPROSTINIL SODIUM) [Suspect]
     Indication: COR PULMONALE CHRONIC
     Dosage: (0.033 UG/KG, 1 IN 1 MIN)
     Route: 058
     Dates: start: 20130821
  2. ADCIRCA (TADALAFIL) [Concomitant]
  3. LETAIRIS (AMRISENTAN) [Concomitant]

REACTIONS (1)
  - Hypotension [None]
